FAERS Safety Report 8922596 (Version 1)
Quarter: 2012Q4

REPORT INFORMATION
  Report Type: 
  Country: US (occurrence: US)
  Receive Date: 20121125
  Receipt Date: 20121125
  Transmission Date: 20130627
  Serious: Yes (Other)
  Sender: FDA-Public Use
  Company Number: US-AMGEN-USASP2012074460

PATIENT
  Age: 1 Year
  Sex: Male

DRUGS (3)
  1. NPLATE [Suspect]
     Dosage: 3 mug/kg, qwk
     Route: 064
     Dates: start: 20101108
  2. FOLATE [Concomitant]
     Route: 064
  3. PRENATAL VITAMINS                  /02014401/ [Concomitant]
     Route: 064

REACTIONS (2)
  - Haemorrhagic diathesis [Unknown]
  - Premature baby [Unknown]
